FAERS Safety Report 14169498 (Version 1)
Quarter: 2017Q4

REPORT INFORMATION
  Report Type: Spontaneous
  Country: CN (occurrence: CN)
  Receive Date: 20171108
  Receipt Date: 20171108
  Transmission Date: 20180321
  Serious: Yes (Hospitalization, Other)
  Sender: FDA-Public Use
  Company Number: CN-ASTELLAS-2017US045291

PATIENT
  Age: 52 Year
  Sex: Male

DRUGS (6)
  1. TACROLIMUS. [Suspect]
     Active Substance: TACROLIMUS
     Dosage: 3 MG, (0.2 MG/KG/D) TWICE DAILY (BLOOD CONCENTRATION OF 9.9 UG/L)
     Route: 048
  2. MYCOPHENOLATE MOFETIL. [Concomitant]
     Active Substance: MYCOPHENOLATE MOFETIL
     Indication: RENAL TRANSPLANT
     Dosage: 1.0 G, TWICE DAILY
     Route: 048
  3. TACROLIMUS. [Suspect]
     Active Substance: TACROLIMUS
     Indication: RENAL TRANSPLANT
     Dosage: 1 MG, TWICE DAILY (BLOOD CONCENTRATION OF 5.6 UG/L)
     Route: 048
  4. METHYLPREDNISOLONE. [Concomitant]
     Active Substance: METHYLPREDNISOLONE
     Dosage: 1.0 G, UNKNOWN FREQ. (DURING OPERATION)
     Route: 041
  5. PREDNISONE. [Concomitant]
     Active Substance: PREDNISONE
     Indication: RENAL TRANSPLANT
     Route: 048
  6. METHYLPREDNISOLONE. [Concomitant]
     Active Substance: METHYLPREDNISOLONE
     Dosage: 0.5 G, ONCE DAILY (AFTER OPERATION)
     Route: 041

REACTIONS (3)
  - Cardiac arrest [Recovered/Resolved]
  - Abdominal distension [Unknown]
  - Blood potassium increased [Recovered/Resolved]
